FAERS Safety Report 17861181 (Version 2)
Quarter: 2020Q2

REPORT INFORMATION
  Report Type: Spontaneous
  Country: CA (occurrence: CA)
  Receive Date: 20200604
  Receipt Date: 20200611
  Transmission Date: 20200714
  Serious: Yes (Hospitalization, Other)
  Sender: FDA-Public Use
  Company Number: CA-PFIZER INC-2020215939

PATIENT
  Age: 26 Year
  Sex: Male

DRUGS (1)
  1. HEPARIN SODIUM. [Suspect]
     Active Substance: HEPARIN SODIUM
     Dosage: UNFRACTIONATED HEPARIN INFUSION

REACTIONS (4)
  - Condition aggravated [Recovering/Resolving]
  - Cerebral venous sinus thrombosis [Recovering/Resolving]
  - Autoimmune heparin-induced thrombocytopenia [Recovering/Resolving]
  - Cerebral haematoma [Recovering/Resolving]
